FAERS Safety Report 9597835 (Version 1)
Quarter: 2013Q4

REPORT INFORMATION
  Report Type: Spontaneous
  Country: US (occurrence: US)
  Receive Date: 20131004
  Receipt Date: 20131004
  Transmission Date: 20140711
  Serious: No
  Sender: FDA-Public Use
  Company Number: US-AMGEN-USASP2013021193

PATIENT
  Age: 53 Year
  Sex: Female
  Weight: 53.52 kg

DRUGS (13)
  1. ENBREL [Suspect]
     Indication: PRODUCT USED FOR UNKNOWN INDICATION
     Dosage: 50 MG, EVERY SEVEN DAYS AS DIRECTED
     Route: 058
     Dates: end: 20121228
  2. CIMZIA [Concomitant]
     Dosage: UNK
  3. FOLIC ACID [Concomitant]
     Dosage: 1 MG, UNK
  4. PREDNISONE [Concomitant]
     Dosage: UNK
  5. VITAMIN D                          /00107901/ [Concomitant]
     Dosage: 400 UNIT
  6. METHOTREXATE [Concomitant]
     Dosage: UNK
  7. SULFASALAZIN [Concomitant]
     Dosage: 500 MG, UNK
  8. CYCLOBENZAPRINE [Concomitant]
     Dosage: 5 MG, UNK
  9. PLAQUENIL                          /00072602/ [Concomitant]
     Dosage: 200 MG, UNK
  10. ORPHENADRINE [Concomitant]
     Dosage: 100 MG, UNK
  11. ZOLOFT [Concomitant]
     Dosage: 25 MG, UNK
  12. TRAMADOL HCL [Concomitant]
     Dosage: 50 MG, UNK
  13. NABUMETONE [Concomitant]
     Dosage: 500 MG, UNK

REACTIONS (2)
  - Rheumatoid arthritis [Unknown]
  - Drug ineffective [Unknown]
